FAERS Safety Report 7349606-0 (Version None)
Quarter: 2011Q1

REPORT INFORMATION
  Report Type: 
  Country: None (occurrence: None)
  Receive Date: 20110314
  Receipt Date: 20110302
  Transmission Date: 20110831
  Serious: Yes (Hospitalization)
  Sender: FDA-Public Use
  Company Number: FR-SANOFI-AVENTIS-2010SA072960

PATIENT
  Age: 78 Year
  Sex: Female
  Weight: 56 kg

DRUGS (9)
  1. BLINDED THERAPY [Suspect]
     Indication: THYROID CANCER
     Route: 048
     Dates: start: 20101104, end: 20101114
  2. LEVOTHYROX [Concomitant]
     Indication: HYPOTHYROIDISM
     Route: 048
     Dates: start: 20100801
  3. ACETAMINOPHEN [Concomitant]
     Route: 048
  4. SOTALOL HYDROCHLORIDE [Concomitant]
  5. PLAVIX [Concomitant]
     Indication: THROMBOSIS PROPHYLAXIS
     Route: 048
  6. MULTAQ [Suspect]
     Indication: ARRHYTHMIA
     Route: 048
     Dates: start: 20101104, end: 20101115
  7. CALCIUM [Concomitant]
     Dosage: DOSE:100 UNIT(S)
     Route: 048
  8. FURADANTINE [Concomitant]
     Route: 048
  9. ESOMEPRAZOLE [Concomitant]
     Indication: PROPHYLAXIS
     Route: 048

REACTIONS (6)
  - DRUG INTERACTION [None]
  - GENERALISED ERYTHEMA [None]
  - MUCOSAL INFLAMMATION [None]
  - OEDEMA MUCOSAL [None]
  - DERMATITIS EXFOLIATIVE [None]
  - PYREXIA [None]
